FAERS Safety Report 18676057 (Version 1)
Quarter: 2020Q4

REPORT INFORMATION
  Report Type: Spontaneous
  Country: DE (occurrence: DE)
  Receive Date: 20201229
  Receipt Date: 20201229
  Transmission Date: 20210114
  Serious: Yes (Hospitalization)
  Sender: FDA-Public Use
  Company Number: DE-TEVA-2020-DE-1862167

PATIENT
  Age: 83 Year
  Sex: Female

DRUGS (6)
  1. HYDROCHLOROTHIAZID [Suspect]
     Active Substance: HYDROCHLOROTHIAZIDE
     Dosage: 12.5 MG, 0.5-0-1-0
  2. METOPROLOL. [Concomitant]
     Active Substance: METOPROLOL
     Dosage: 1 DOSAGE FORMS DAILY; 23.75 MG, 0.5-0.5-0-0
  3. SALBUTAMOL [Concomitant]
     Active Substance: ALBUTEROL
     Dosage: AEROSOL DOSING
     Route: 055
  4. FOSTER [Concomitant]
     Active Substance: BECLOMETHASONE\FORMOTEROL
     Dosage: 2 DOSAGE FORMS DAILY; 1-0-1-0, AEROSOL DOSING
     Route: 055
  5. COLECALCIFEROL (VITAMIN D) [Concomitant]
     Active Substance: CHOLECALCIFEROL
     Dosage: 2 DOSAGE FORMS DAILY; 1000 IU, 2-0-0-0, 2DF
  6. CANDESARTAN. [Concomitant]
     Active Substance: CANDESARTAN
     Dosage: 16 MG, 0.5-0-1-0

REACTIONS (4)
  - Dizziness [Unknown]
  - Nausea [Unknown]
  - Product prescribing error [Unknown]
  - Syncope [Unknown]
